FAERS Safety Report 7709498-4 (Version None)
Quarter: 2011Q3

REPORT INFORMATION
  Report Type: 
  Country: None (occurrence: None)
  Receive Date: 20110825
  Receipt Date: 20110819
  Transmission Date: 20111222
  Serious: Yes (Hospitalization, Disabling, Other)
  Sender: FDA-Public Use
  Company Number: US-ABBOTT-11P-163-0847806-00

PATIENT
  Sex: Male

DRUGS (1)
  1. HUMIRA [Suspect]
     Indication: PRODUCT USED FOR UNKNOWN INDICATION

REACTIONS (7)
  - ACTIVITIES OF DAILY LIVING IMPAIRED [None]
  - HOSPITALISATION [None]
  - DRUG HYPERSENSITIVITY [None]
  - EMOTIONAL POVERTY [None]
  - COMPLEX REGIONAL PAIN SYNDROME [None]
  - MUSCLE ATROPHY [None]
  - PAIN [None]
